FAERS Safety Report 15190104 (Version 1)
Quarter: 2018Q3

REPORT INFORMATION
  Report Type: Spontaneous
  Country: CY (occurrence: CY)
  Receive Date: 20180724
  Receipt Date: 20180724
  Transmission Date: 20181010
  Serious: Yes (Hospitalization, Disabling)
  Sender: FDA-Public Use
  Company Number: PHHY2018CY051212

PATIENT
  Age: 52 Year
  Sex: Female

DRUGS (2)
  1. LETROZOLE. [Suspect]
     Active Substance: LETROZOLE
     Indication: BREAST CANCER
     Dosage: UNK
     Route: 048
     Dates: start: 201703, end: 201712
  2. AREMED [Suspect]
     Active Substance: ANASTROZOLE
     Indication: BREAST CANCER
     Dosage: UNK
     Route: 048

REACTIONS (3)
  - Arthralgia [Not Recovered/Not Resolved]
  - Headache [Not Recovered/Not Resolved]
  - Paralysis [Recovered/Resolved]

NARRATIVE: CASE EVENT DATE: 2017
